FAERS Safety Report 6523786-9 (Version None)
Quarter: 2009Q4

REPORT INFORMATION
  Report Type: 
  Country: None (occurrence: None)
  Receive Date: 20091231
  Receipt Date: 20091130
  Transmission Date: 20100525
  Serious: No
  Sender: FDA-Public Use
  Company Number: US-BAYER-200941789NA

PATIENT
  Age: 32 Year
  Sex: Female
  Weight: 54 kg

DRUGS (2)
  1. MIRENA [Suspect]
     Indication: DRUG USE FOR UNKNOWN INDICATION
     Dosage: CONTINUOUS
     Route: 015
     Dates: start: 20090301
  2. BIRTH CONTROL [Concomitant]

REACTIONS (8)
  - ACNE [None]
  - BREAST TENDERNESS [None]
  - DECREASED APPETITE [None]
  - DYSMENORRHOEA [None]
  - HEADACHE [None]
  - METRORRHAGIA [None]
  - VAGINAL HAEMORRHAGE [None]
  - WEIGHT DECREASED [None]
